FAERS Safety Report 4762910-5 (Version None)
Quarter: 2005Q3

REPORT INFORMATION
  Report Type: 
  Country: None (occurrence: None)
  Receive Date: 20050907
  Receipt Date: 20050829
  Transmission Date: 20060218
  Serious: Yes (Other)
  Sender: FDA-Public Use
  Company Number: PHEH2005US09603

PATIENT
  Sex: Female
  Weight: 73 kg

DRUGS (7)
  1. ZOMETA [Suspect]
     Indication: MULTIPLE MYELOMA
     Dosage: 4 MG EVERY MONTH
     Dates: start: 20030101, end: 20050512
  2. ALKERAN [Concomitant]
     Indication: MULTIPLE MYELOMA
     Dosage: 4 MG, QD X 4 DAYS
     Dates: start: 20030110
  3. PREDNISONE [Concomitant]
     Indication: MULTIPLE MYELOMA
     Dosage: 100 MG, QD X 4 DAYS
     Dates: start: 20030110
  4. ARANESP [Concomitant]
     Dates: start: 20030522
  5. ZOCOR [Concomitant]
  6. PREMARIN [Concomitant]
  7. PROCRIT [Concomitant]
     Dates: start: 20030522

REACTIONS (9)
  - ASEPTIC NECROSIS BONE [None]
  - EXCESSIVE GRANULATION TISSUE [None]
  - IMPAIRED HEALING [None]
  - INFECTION [None]
  - OSTEONECROSIS [None]
  - SKIN GRAFT [None]
  - TOOTH EXTRACTION [None]
  - WOUND COMPLICATION [None]
  - WOUND DEBRIDEMENT [None]
